FAERS Safety Report 18792912 (Version 12)
Quarter: 2025Q3

REPORT INFORMATION
  Report Type: Spontaneous
  Country: US (occurrence: US)
  Receive Date: 20210127
  Receipt Date: 20250708
  Transmission Date: 20251021
  Serious: Yes (Other)
  Sender: PFIZER
  Company Number: US-PFIZER INC-2019250657

PATIENT
  Age: 36 Year
  Sex: Male

DRUGS (9)
  1. XYNTHA [Suspect]
     Active Substance: MOROCTOCOG ALFA
     Indication: Haemarthrosis
  2. XYNTHA [Suspect]
     Active Substance: MOROCTOCOG ALFA
     Indication: Prophylaxis
     Route: 042
     Dates: start: 20221014
  3. XYNTHA [Suspect]
     Active Substance: MOROCTOCOG ALFA
     Route: 042
     Dates: start: 20221014
  4. XYNTHA [Suspect]
     Active Substance: MOROCTOCOG ALFA
     Route: 042
  5. XYNTHA [Suspect]
     Active Substance: MOROCTOCOG ALFA
     Route: 042
  6. XYNTHA [Suspect]
     Active Substance: MOROCTOCOG ALFA
     Route: 042
  7. XYNTHA [Suspect]
     Active Substance: MOROCTOCOG ALFA
  8. XYNTHA [Suspect]
     Active Substance: MOROCTOCOG ALFA
     Route: 042
  9. XYNTHA [Suspect]
     Active Substance: MOROCTOCOG ALFA

REACTIONS (1)
  - Haemorrhage [Unknown]
